FAERS Safety Report 8033306-8 (Version None)
Quarter: 2012Q1

REPORT INFORMATION
  Report Type: 
  Country: None (occurrence: None)
  Receive Date: 20120110
  Receipt Date: 20120105
  Transmission Date: 20120608
  Serious: Yes (Death, Life-Threatening, Hospitalization, Disabling)
  Sender: FDA-Public Use
  Company Number: US-JNJFOC-20110604364

PATIENT
  Sex: Male
  Weight: 83.2 kg

DRUGS (20)
  1. RANITIDINE [Concomitant]
     Indication: GASTROOESOPHAGEAL REFLUX DISEASE
     Route: 048
  2. NORVASC [Concomitant]
     Indication: HYPERTENSION
     Route: 048
     Dates: start: 20110305
  3. FOLIC ACID [Concomitant]
     Indication: MEDICAL DIET
     Route: 048
     Dates: start: 20000612
  4. GLUCOSAMINE [Concomitant]
     Indication: MEDICAL DIET
     Route: 048
  5. ENBREL [Concomitant]
     Indication: RHEUMATOID ARTHRITIS
     Route: 058
     Dates: start: 20100619
  6. JALYN [Concomitant]
     Indication: BENIGN PROSTATIC HYPERPLASIA
     Route: 058
  7. GOLIMUMAB [Suspect]
     Route: 058
     Dates: start: 20110510
  8. OTHER DRUGS USED IN BENIGN PROSTATIC HYPERTR. [Concomitant]
     Indication: MEDICAL DIET
     Route: 058
  9. METHOTREXATE [Concomitant]
     Indication: RHEUMATOID ARTHRITIS
     Route: 058
     Dates: start: 20000612
  10. WARFARIN SODIUM [Concomitant]
     Route: 048
  11. WARFARIN SODIUM [Concomitant]
     Indication: ATRIAL FIBRILLATION
     Route: 048
  12. OS.CAL [Concomitant]
     Indication: MEDICAL DIET
     Route: 048
  13. VITAMIN C [Concomitant]
     Indication: MEDICAL DIET
     Route: 048
  14. ATENOLOL [Concomitant]
     Indication: HYPERTENSION
     Route: 048
  15. COLACE [Concomitant]
     Route: 048
     Dates: start: 20110418
  16. PERCOCET [Concomitant]
     Route: 048
     Dates: start: 20110418
  17. GOLIMUMAB [Suspect]
     Indication: RHEUMATOID ARTHRITIS
     Route: 058
     Dates: start: 20101228
  18. NORVASC [Concomitant]
     Route: 048
     Dates: start: 20110418
  19. DIOVAN [Concomitant]
     Indication: HYPERTENSION
     Route: 048
  20. SULFASALAZINE [Concomitant]
     Indication: RHEUMATOID ARTHRITIS
     Route: 058

REACTIONS (7)
  - DROOLING [None]
  - HYDROCEPHALUS [None]
  - DYSARTHRIA [None]
  - BRAIN MIDLINE SHIFT [None]
  - CEREBRAL HAEMORRHAGE [None]
  - BASAL GANGLIA HAEMORRHAGE [None]
  - FALL [None]
